FAERS Safety Report 5923336-1 (Version None)
Quarter: 2008Q4

REPORT INFORMATION
  Report Type: 
  Country: None (occurrence: None)
  Receive Date: 20081020
  Receipt Date: 20081014
  Transmission Date: 20090506
  Serious: Yes (Hospitalization)
  Sender: FDA-Public Use
  Company Number: ES-AVENTIS-200815569EU

PATIENT
  Age: 94 Year
  Sex: Female

DRUGS (1)
  1. SEGURIL                            /00032601/ [Suspect]
     Route: 048
     Dates: start: 20080317, end: 20080318

REACTIONS (1)
  - SYNCOPE [None]
